FAERS Safety Report 11125726 (Version 5)
Quarter: 2015Q4

REPORT INFORMATION
  Report Type: Report from Study
  Country: US (occurrence: US)
  Receive Date: 20150520
  Receipt Date: 20151001
  Transmission Date: 20160304
  Serious: No
  Sender: FDA-Public Use
  Company Number: US-AMGEN-USASP2015048354

PATIENT
  Age: 51 Year
  Sex: Female

DRUGS (2)
  1. ENBREL [Suspect]
     Active Substance: ETANERCEPT
     Dosage: UNK
     Route: 058
  2. ENBREL [Suspect]
     Active Substance: ETANERCEPT
     Indication: RHEUMATOID ARTHRITIS
     Dosage: 50 MG, QWK
     Route: 058
     Dates: start: 20150217

REACTIONS (16)
  - Feeling abnormal [Not Recovered/Not Resolved]
  - Injection site erythema [Unknown]
  - Hot flush [Not Recovered/Not Resolved]
  - Dry skin [Unknown]
  - Insomnia [Not Recovered/Not Resolved]
  - Memory impairment [Recovered/Resolved]
  - Neck pain [Not Recovered/Not Resolved]
  - Injection site urticaria [Unknown]
  - Night sweats [Unknown]
  - Musculoskeletal pain [Not Recovered/Not Resolved]
  - Depressed mood [Unknown]
  - Nodule [Unknown]
  - Feeling of body temperature change [Unknown]
  - Hyperhidrosis [Not Recovered/Not Resolved]
  - Skin swelling [Unknown]
  - Skin disorder [Unknown]

NARRATIVE: CASE EVENT DATE: 2015
